FAERS Safety Report 8608928-3 (Version None)
Quarter: 2012Q3

REPORT INFORMATION
  Report Type: 
  Country: None (occurrence: None)
  Receive Date: 20120821
  Receipt Date: 20120807
  Transmission Date: 20120928
  Serious: No
  Sender: FDA-Public Use
  Company Number: US-ASTRAZENECA-2012SE55788

PATIENT
  Age: 66 Year
  Sex: Male
  Weight: 125.6 kg

DRUGS (18)
  1. OMEPRAZOLE [Suspect]
     Indication: EROSIVE OESOPHAGITIS
     Route: 048
     Dates: start: 20080101, end: 20120701
  2. LANTUS [Concomitant]
     Indication: DIABETES MELLITUS
  3. CALCIUM [Concomitant]
  4. COUMADIN [Concomitant]
     Indication: ANTICOAGULANT THERAPY
  5. TRICOR [Concomitant]
  6. DILANTIN [Concomitant]
     Indication: CONVULSION
  7. MAGNESIUM [Concomitant]
  8. VITAMIN E [Concomitant]
  9. AMLODIPAN [Concomitant]
  10. FISH OIL [Concomitant]
  11. LASIX [Concomitant]
  12. METFORMIN HCL [Concomitant]
     Indication: DIABETES MELLITUS
  13. AVEPRO [Concomitant]
  14. LIPITOR [Concomitant]
  15. OMEPRAZOLE [Suspect]
     Route: 048
     Dates: start: 20120701
  16. DOXEPIN [Concomitant]
     Indication: HYPERTENSION
  17. HUMALOG [Concomitant]
     Indication: DIABETES MELLITUS
  18. VITAMIN D [Concomitant]

REACTIONS (5)
  - WEIGHT DECREASED [None]
  - DYSPHAGIA [None]
  - CHOKING SENSATION [None]
  - DISEASE RECURRENCE [None]
  - INTENTIONAL DRUG MISUSE [None]
